FAERS Safety Report 19055240 (Version 1)
Quarter: 2021Q1

REPORT INFORMATION
  Report Type: Other
  Country: US (occurrence: US)
  Receive Date: 20210325
  Receipt Date: 20210325
  Transmission Date: 20210420
  Serious: No
  Sender: FDA-Public Use
  Company Number: US-CADILA HEALTHCARE LIMITED-US-ZYDUS-052164

PATIENT

DRUGS (1)
  1. LAMOTRIGINE 150 MILLIGRAM TABLET [Suspect]
     Active Substance: LAMOTRIGINE
     Indication: PRODUCT USED FOR UNKNOWN INDICATION
     Dosage: 150 MILLIGRAM
     Route: 065
     Dates: start: 20200116, end: 2020

REACTIONS (2)
  - Gait disturbance [Not Recovered/Not Resolved]
  - Speech disorder [Not Recovered/Not Resolved]

NARRATIVE: CASE EVENT DATE: 2020
